FAERS Safety Report 10699386 (Version 9)
Quarter: 2016Q1

REPORT INFORMATION
  Report Type: Report from Study
  Country: US (occurrence: US)
  Receive Date: 20150109
  Receipt Date: 20160303
  Transmission Date: 20160525
  Serious: Yes (Other)
  Sender: FDA-Public Use
  Company Number: US-AMGEN-USASP2014101429

PATIENT
  Age: 13 Year
  Sex: Female

DRUGS (2)
  1. ENBREL [Suspect]
     Active Substance: ETANERCEPT
     Indication: JUVENILE IDIOPATHIC ARTHRITIS
     Dosage: 25 MG, TWICE EVERY OTHER WEEK
     Route: 065
     Dates: start: 20141016
  2. PLAQUENIL [Concomitant]
     Active Substance: HYDROXYCHLOROQUINE SULFATE
     Dosage: UNK

REACTIONS (27)
  - Feeling abnormal [Not Recovered/Not Resolved]
  - Menorrhagia [Not Recovered/Not Resolved]
  - Memory impairment [Not Recovered/Not Resolved]
  - Back pain [Recovering/Resolving]
  - Anger [Not Recovered/Not Resolved]
  - Arthralgia [Recovering/Resolving]
  - Fatigue [Unknown]
  - Underdose [Recovered/Resolved]
  - Dry skin [Unknown]
  - Pain [Recovered/Resolved]
  - Pyrexia [Recovered/Resolved]
  - Neck pain [Recovered/Resolved]
  - Mood altered [Not Recovered/Not Resolved]
  - Pallor [Recovered/Resolved]
  - Aggression [Not Recovered/Not Resolved]
  - Malaise [Not Recovered/Not Resolved]
  - Influenza [Not Recovered/Not Resolved]
  - Dyskinesia [Recovered/Resolved]
  - Stress [Recovered/Resolved]
  - Mood swings [Not Recovered/Not Resolved]
  - Vaginal ulceration [Recovered/Resolved]
  - Mouth ulceration [Recovered/Resolved]
  - Increased tendency to bruise [Unknown]
  - Behcet^s syndrome [Recovered/Resolved]
  - Headache [Unknown]
  - Bone pain [Not Recovered/Not Resolved]
  - Crying [Recovered/Resolved]

NARRATIVE: CASE EVENT DATE: 201410
